FAERS Safety Report 25019339 (Version 3)
Quarter: 2025Q1

REPORT INFORMATION
  Report Type: Spontaneous
  Country: US (occurrence: US)
  Receive Date: 20250227
  Receipt Date: 20250327
  Transmission Date: 20250408
  Serious: No
  Sender: BAYER HEALTHCARE PHARMACEUTICALS INC.
  Company Number: US-BAYER-2025A025995

PATIENT
  Age: 59 Year
  Sex: Female

DRUGS (1)
  1. CLIMARA PRO [Suspect]
     Active Substance: ESTRADIOL\LEVONORGESTREL
     Indication: Postmenopause
     Route: 062
     Dates: start: 20241204, end: 202502

REACTIONS (5)
  - Application site rash [Recovered/Resolved]
  - Application site scab [Recovered/Resolved]
  - Product physical issue [None]
  - Device adhesion issue [None]
  - Wrong technique in device usage process [None]

NARRATIVE: CASE EVENT DATE: 20241205
